FAERS Safety Report 4779676-5 (Version None)
Quarter: 2005Q3

REPORT INFORMATION
  Report Type: 
  Country: None (occurrence: None)
  Receive Date: 20050927
  Receipt Date: 20050818
  Transmission Date: 20060218
  Serious: Yes (Other)
  Sender: FDA-Public Use
  Company Number: PHBS2005JP12098

PATIENT
  Sex: Female

DRUGS (2)
  1. LUDIOMIL [Suspect]
     Indication: MAJOR DEPRESSION
     Dosage: UNK, UNK
     Route: 065
  2. LUDIOMIL [Suspect]
     Dosage: 75 MG/D
     Route: 065
     Dates: start: 20000801

REACTIONS (9)
  - AKINESIA [None]
  - APHASIA [None]
  - CATATONIA [None]
  - ELECTROCONVULSIVE THERAPY [None]
  - NEGATIVISM [None]
  - REGRESSIVE BEHAVIOUR [None]
  - STARING [None]
  - THOUGHT BLOCKING [None]
  - WEIGHT DECREASED [None]
